FAERS Safety Report 18981534 (Version 1)
Quarter: 2021Q1

REPORT INFORMATION
  Report Type: Spontaneous
  Country: US (occurrence: US)
  Receive Date: 20210308
  Receipt Date: 20210308
  Transmission Date: 20210420
  Serious: Yes (Hospitalization)
  Sender: FDA-Public Use
  Company Number: None

PATIENT
  Age: 5 Year
  Sex: Female

DRUGS (2)
  1. GRANIX [Suspect]
     Active Substance: TBO-FILGRASTIM
     Indication: BRAIN NEOPLASM MALIGNANT
     Route: 058
  2. POT CHLORIDE SOL [Concomitant]

REACTIONS (1)
  - Therapy interrupted [None]
